FAERS Safety Report 5662554-7 (Version None)
Quarter: 2008Q1

REPORT INFORMATION
  Report Type: 
  Country: None (occurrence: None)
  Receive Date: 20080213
  Receipt Date: 20080213
  Transmission Date: 20080703
  Serious: Yes (Other)
  Sender: FDA-Public Use
  Company Number: 200717752US

PATIENT
  Age: 67 Year
  Sex: Female

DRUGS (11)
  1. APIDRA [Suspect]
     Indication: TYPE 1 DIABETES MELLITUS
     Dosage: INJ
     Dates: start: 20071030
  2. IBUROFEN [Concomitant]
  3. CALCIUM CARBONATE (CALTRATE 00108001/) [Concomitant]
  4. HYDROCORTISONE ACETATE (CORTEF /00028604/) [Concomitant]
  5. LEVOTHYROXINE SODIUM (LEVOXYL) [Concomitant]
  6. ESOMEPRAZOLE MAGNESIUM [Concomitant]
  7. AMYLASE, PROTEASE, LIPASE (PANGESTYME) [Concomitant]
  8. SINGULAIR [Concomitant]
  9. WARFARIN SODIUM [Concomitant]
  10. SERTRALINE (ZOLOFT /01011401/) [Concomitant]
  11. CALCITRONIN, SALMON (MIACALCIN) [Concomitant]

REACTIONS (1)
  - HYPOGLYCAEMIA [None]
